FAERS Safety Report 15146330 (Version 3)
Quarter: 2023Q4

REPORT INFORMATION
  Report Type: Spontaneous
  Country: US (occurrence: US)
  Receive Date: 20180715
  Receipt Date: 20231110
  Transmission Date: 20240110
  Serious: No
  Sender: FDA-Public Use
  Company Number: US-JNJFOC-20180704804

PATIENT
  Age: 6 Year
  Sex: Male

DRUGS (19)
  1. RISPERDAL [Suspect]
     Active Substance: RISPERIDONE
     Indication: Impulse-control disorder
     Dosage: VARING DOSES 0.25 MG, 1 MG 2 MG AND 0.5 MG/THRICE DAILY
     Route: 048
     Dates: start: 20060501, end: 20130514
  2. RISPERDAL [Suspect]
     Active Substance: RISPERIDONE
     Indication: Oppositional defiant disorder
  3. RISPERDAL [Suspect]
     Active Substance: RISPERIDONE
     Indication: Bipolar disorder
  4. RISPERDAL [Suspect]
     Active Substance: RISPERIDONE
     Indication: Post-traumatic stress disorder
  5. RISPERDAL [Suspect]
     Active Substance: RISPERIDONE
     Indication: Aggression
  6. RISPERIDONE [Suspect]
     Active Substance: RISPERIDONE
     Indication: Bipolar disorder
     Dosage: VARYING DOSES OF 0.5 MG AND 1 MG
     Route: 048
     Dates: start: 20110819, end: 20121217
  7. RISPERIDONE [Suspect]
     Active Substance: RISPERIDONE
     Indication: Impulse-control disorder
  8. RISPERIDONE [Suspect]
     Active Substance: RISPERIDONE
     Indication: Oppositional defiant disorder
  9. RISPERIDONE [Suspect]
     Active Substance: RISPERIDONE
     Indication: Post-traumatic stress disorder
  10. RISPERDAL M-TAB [Suspect]
     Active Substance: RISPERIDONE
     Indication: Bipolar disorder
     Route: 048
     Dates: start: 20110818, end: 20130711
  11. RISPERDAL M-TAB [Suspect]
     Active Substance: RISPERIDONE
     Indication: Impulse-control disorder
  12. RISPERDAL M-TAB [Suspect]
     Active Substance: RISPERIDONE
     Indication: Oppositional defiant disorder
  13. RISPERDAL M-TAB [Suspect]
     Active Substance: RISPERIDONE
     Indication: Post-traumatic stress disorder
  14. RISPERDAL M-TAB [Suspect]
     Active Substance: RISPERIDONE
     Indication: Aggression
  15. RISPERDAL M-TAB [Suspect]
     Active Substance: RISPERIDONE
     Indication: Bipolar disorder
     Route: 048
     Dates: start: 20110819
  16. RISPERDAL M-TAB [Suspect]
     Active Substance: RISPERIDONE
     Indication: Impulse-control disorder
  17. RISPERDAL M-TAB [Suspect]
     Active Substance: RISPERIDONE
     Indication: Oppositional defiant disorder
  18. RISPERDAL M-TAB [Suspect]
     Active Substance: RISPERIDONE
     Indication: Post-traumatic stress disorder
  19. RISPERIDONE [Suspect]
     Active Substance: RISPERIDONE
     Indication: Product used for unknown indication
     Route: 065

REACTIONS (3)
  - Gynaecomastia [Unknown]
  - Emotional distress [Unknown]
  - Off label use [Unknown]

NARRATIVE: CASE EVENT DATE: 20060501
